FAERS Safety Report 7117600-0 (Version None)
Quarter: 2010Q4

REPORT INFORMATION
  Report Type: 
  Country: None (occurrence: None)
  Receive Date: 20101122
  Receipt Date: 20101112
  Transmission Date: 20110411
  Serious: Yes (Hospitalization, Other)
  Sender: FDA-Public Use
  Company Number: US-AMGEN-QUU435579

PATIENT

DRUGS (6)
  1. NEULASTA [Suspect]
     Indication: CHEMOTHERAPY
     Dosage: 6 MG, UNK
     Route: 065
     Dates: start: 20100804
  2. DOCETAXEL [Concomitant]
  3. DOXORUBICIN HCL [Concomitant]
     Dosage: UNK
     Dates: start: 20100731
  4. CYCLOPHOSPHAMIDE [Concomitant]
  5. CISPLATIN [Concomitant]
     Dosage: UNK
     Dates: start: 20100731
  6. ZOFRAN [Concomitant]

REACTIONS (4)
  - DEHYDRATION [None]
  - FEBRILE NEUTROPENIA [None]
  - NAUSEA [None]
  - VOMITING [None]
